FAERS Safety Report 6210694-6 (Version None)
Quarter: 2009Q2

REPORT INFORMATION
  Report Type: 
  Country: None (occurrence: None)
  Receive Date: 20090528
  Receipt Date: 20090528
  Transmission Date: 20091009
  Serious: Yes (Other)
  Sender: FDA-Public Use
  Company Number: None

PATIENT
  Age: 50 Year
  Sex: Male
  Weight: 97.7 kg

DRUGS (1)
  1. OXALIPLATIN [Suspect]
     Indication: COLON CANCER METASTATIC
     Dosage: 67.6MG EVERY 3 WEEKS IV DRIP  1.5 HOURS
     Route: 041
     Dates: start: 20090526, end: 20090526

REACTIONS (7)
  - BONE PAIN [None]
  - CHILLS [None]
  - FEELING COLD [None]
  - HEART RATE INCREASED [None]
  - INFUSION RELATED REACTION [None]
  - NAUSEA [None]
  - PYREXIA [None]
